FAERS Safety Report 6463751-3 (Version None)
Quarter: 2009Q4

REPORT INFORMATION
  Report Type: 
  Country: None (occurrence: None)
  Receive Date: 20091130
  Receipt Date: 20091130
  Transmission Date: 20100525
  Serious: No
  Sender: FDA-Public Use
  Company Number: None

PATIENT
  Sex: Male
  Weight: 100.2 kg

DRUGS (2)
  1. TAXOTERE [Suspect]
     Dosage: 161 MG
  2. LEUPROLIDE ACETATE [Suspect]
     Dosage: 30 MG

REACTIONS (3)
  - MONOCYTE PERCENTAGE INCREASED [None]
  - NEUTROPHIL COUNT DECREASED [None]
  - WHITE BLOOD CELL COUNT DECREASED [None]
